FAERS Safety Report 21945197 (Version 4)
Quarter: 2023Q2

REPORT INFORMATION
  Report Type: Report from Study
  Country: FR (occurrence: FR)
  Receive Date: 20230202
  Receipt Date: 20230526
  Transmission Date: 20230721
  Serious: Yes (Life-Threatening)
  Sender: FDA-Public Use
  Company Number: FR-SERVIER-S23000910

PATIENT

DRUGS (4)
  1. IVOSIDENIB [Suspect]
     Active Substance: IVOSIDENIB
     Indication: Product used for unknown indication
     Dates: start: 20221123, end: 20221222
  2. CYTARABINE [Suspect]
     Active Substance: CYTARABINE
     Indication: Product used for unknown indication
     Dosage: 200 MG/M2
     Route: 065
  3. DAUNORUBICIN [Suspect]
     Active Substance: DAUNORUBICIN
     Indication: Product used for unknown indication
     Dosage: 60 MG/M2
     Route: 065
  4. VALACYCLOVIR HYDROCHLORIDE [Concomitant]
     Active Substance: VALACYCLOVIR HYDROCHLORIDE
     Indication: Product used for unknown indication
     Dosage: 500 MG, BID
     Route: 065
     Dates: start: 20210709

REACTIONS (1)
  - Dilated cardiomyopathy [Recovered/Resolved]

NARRATIVE: CASE EVENT DATE: 20230111
